FAERS Safety Report 9828907 (Version 6)
Quarter: 2014Q2

REPORT INFORMATION
  Report Type: Report from Study
  Country: CA (occurrence: CA)
  Receive Date: 20140118
  Receipt Date: 20140404
  Transmission Date: 20141212
  Serious: Yes (Hospitalization, Other)
  Sender: FDA-Public Use
  Company Number: CA-ABBVIE-14P-028-1185581-00

PATIENT
  Sex: Female
  Weight: 81.72 kg

DRUGS (4)
  1. HUMIRA [Suspect]
     Indication: CROHN^S DISEASE
     Route: 058
     Dates: start: 20121119, end: 20131202
  2. HUMIRA [Suspect]
     Dates: start: 20140217
  3. HUMIRA [Suspect]
     Dosage: RE-STARTED
     Dates: start: 20140330
  4. OMEPRAZOLE [Concomitant]
     Indication: GASTROOESOPHAGEAL REFLUX DISEASE
     Route: 048

REACTIONS (7)
  - Abdominal hernia [Unknown]
  - Gastric dilatation [Not Recovered/Not Resolved]
  - Functional gastrointestinal disorder [Not Recovered/Not Resolved]
  - Abdominal pain upper [Not Recovered/Not Resolved]
  - Malaise [Unknown]
  - Inappropriate schedule of drug administration [Unknown]
  - Post procedural complication [Unknown]
